FAERS Safety Report 18537886 (Version 3)
Quarter: 2021Q2

REPORT INFORMATION
  Report Type: Report from Study
  Country: CO (occurrence: CO)
  Receive Date: 20201124
  Receipt Date: 20210510
  Transmission Date: 20210717
  Serious: No
  Sender: FDA-Public Use
  Company Number: CO-JNJFOC-20201115130

PATIENT
  Age: 32 Year
  Sex: Female
  Weight: 64 kg

DRUGS (6)
  1. LEFLUNOMIDE. [Concomitant]
     Active Substance: LEFLUNOMIDE
  2. NAPROXEN. [Concomitant]
     Active Substance: NAPROXEN
     Route: 065
  3. AMOXICILLIN. [Concomitant]
     Active Substance: AMOXICILLIN
  4. PARACETAMOL [Concomitant]
     Active Substance: ACETAMINOPHEN
  5. PREDNISOLONE. [Concomitant]
     Active Substance: PREDNISOLONE
  6. SIMPONI [Suspect]
     Active Substance: GOLIMUMAB
     Indication: RHEUMATOID ARTHRITIS
     Dosage: THE MOST RECENT DRUG ADMINISTRATION WAS ON 03JAN2021
     Route: 058
     Dates: start: 20200302

REACTIONS (6)
  - Pyrexia [Recovered/Resolved]
  - Nasopharyngitis [Recovered/Resolved]
  - Product container seal issue [Unknown]
  - Device issue [Unknown]
  - Pain [Recovered/Resolved]
  - Headache [Recovered/Resolved]

NARRATIVE: CASE EVENT DATE: 202010
